FAERS Safety Report 4587380-1 (Version None)
Quarter: 2005Q1

REPORT INFORMATION
  Report Type: 
  Country: None (occurrence: None)
  Receive Date: 20050215
  Receipt Date: 20050202
  Transmission Date: 20050727
  Serious: Yes (Other)
  Sender: FDA-Public Use
  Company Number: 200510247GDS

PATIENT
  Age: 65 Year
  Sex: Male

DRUGS (3)
  1. AVELOX [Suspect]
     Indication: PNEUMONIA
     Dosage: 400 MG, QD, INTRAVENOUS
     Route: 042
  2. AVELOX [Suspect]
     Indication: PNEUMONIA
     Dosage: 400 MG, QD, ORAL
     Route: 048
  3. ORTHOXICOL COUGH SUPPRESSANT [Concomitant]

REACTIONS (4)
  - ARTHRITIS [None]
  - FURUNCLE [None]
  - STEVENS-JOHNSON SYNDROME [None]
  - VIRAL INFECTION [None]
